FAERS Safety Report 4913070-9 (Version None)
Quarter: 2006Q1

REPORT INFORMATION
  Report Type: 
  Country: None (occurrence: None)
  Receive Date: 20060210
  Receipt Date: 20060201
  Transmission Date: 20060701
  Serious: Yes (Other)
  Sender: FDA-Public Use
  Company Number: 2006016363

PATIENT
  Age: 4 Year
  Sex: Male

DRUGS (1)
  1. LISTERINE (MENTHOL, METHYL SALICYLATE, EUCALYPTOL, THYMOL) [Suspect]
     Indication: ACCIDENTAL EXPOSURE
     Dosage: WHOLE BOTTLE (EXACT AMT UNSPECIFIED), ORAL
     Route: 048
     Dates: start: 20060201, end: 20060201

REACTIONS (3)
  - ACCIDENTAL DRUG INTAKE BY CHILD [None]
  - DIARRHOEA [None]
  - OVERDOSE [None]
